FAERS Safety Report 9071719 (Version 1)
Quarter: 2013Q1

REPORT INFORMATION
  Report Type: Spontaneous
  Country: US (occurrence: US)
  Receive Date: 20130129
  Receipt Date: 20130129
  Transmission Date: 20140127
  Serious: Yes (Other)
  Sender: FDA-Public Use
  Company Number: US-RB-048984-13

PATIENT
  Age: 63 Year
  Sex: Female

DRUGS (3)
  1. MUCINEX DM MAXIMUM STRENGTH [Suspect]
     Indication: PRODUCT USED FOR UNKNOWN INDICATION
     Route: 048
     Dates: start: 20130108
  2. MUCINEX DM MAXIMUM STRENGTH [Suspect]
     Route: 048
     Dates: start: 20130110
  3. MUCINEX DM MAXIMUM STRENGTH [Suspect]

REACTIONS (3)
  - Eye swelling [Recovered/Resolved]
  - Ocular hyperaemia [Recovered/Resolved]
  - Eye pruritus [Recovered/Resolved]
